FAERS Safety Report 4953419-4 (Version None)
Quarter: 2006Q1

REPORT INFORMATION
  Report Type: 
  Country: None (occurrence: None)
  Receive Date: 20060131
  Receipt Date: 20051003
  Transmission Date: 20060701
  Serious: Yes (Hospitalization)
  Sender: FDA-Public Use
  Company Number: 8012503

PATIENT
  Age: 56 Year
  Sex: Female

DRUGS (5)
  1. KEPPRA [Suspect]
     Indication: BODY DYSMORPHIC DISORDER
     Dosage: 1250 MG 2/D PO
     Route: 048
     Dates: start: 20050701, end: 20050930
  2. B-VOLTAREN [Concomitant]
  3. MSM [Concomitant]
  4. VICODIN [Concomitant]
  5. HYDROCHLOROTHIAZIDE [Concomitant]

REACTIONS (2)
  - DEPRESSION [None]
  - SUICIDAL IDEATION [None]
